FAERS Safety Report 25557269 (Version 4)
Quarter: 2025Q3

REPORT INFORMATION
  Report Type: Spontaneous
  Country: US (occurrence: US)
  Receive Date: 20250715
  Receipt Date: 20250814
  Transmission Date: 20251021
  Serious: No
  Sender: Haleon PLC
  Company Number: US-HALEON-2252523

PATIENT

DRUGS (2)
  1. ADVIL [Suspect]
     Active Substance: IBUPROFEN
     Indication: Pyrexia
  2. ADVIL [Suspect]
     Active Substance: IBUPROFEN
     Indication: Toothache

REACTIONS (2)
  - Hyperhidrosis [Recovered/Resolved]
  - Drug ineffective [Unknown]
